FAERS Safety Report 6428860-3 (Version None)
Quarter: 2009Q4

REPORT INFORMATION
  Report Type: 
  Country: None (occurrence: None)
  Receive Date: 20091105
  Receipt Date: 20091029
  Transmission Date: 20100525
  Serious: Yes (Other)
  Sender: FDA-Public Use
  Company Number: JP-AVENTIS-200913024JP

PATIENT
  Age: 52 Year
  Sex: Female

DRUGS (9)
  1. ARAVA [Suspect]
     Route: 048
     Dates: start: 20090702
  2. PREDNISOLONE [Concomitant]
     Indication: RHEUMATOID ARTHRITIS
     Route: 048
     Dates: end: 20090905
  3. PREDNISOLONE [Concomitant]
     Route: 048
     Dates: start: 20090906
  4. ROKITAT [Concomitant]
     Indication: GASTRITIS
     Route: 048
  5. LIPITOR [Concomitant]
     Route: 048
  6. METOLATE [Concomitant]
     Indication: RHEUMATOID ARTHRITIS
     Route: 048
     Dates: end: 20091003
  7. METHOTREXATE [Concomitant]
     Indication: RHEUMATOID ARTHRITIS
     Dosage: DOSE QUANTITY: 2.5
     Route: 048
     Dates: end: 20091003
  8. FOLIAMIN [Concomitant]
     Indication: FOLATE DEFICIENCY
     Route: 048
     Dates: end: 20090801
  9. FOLIAMIN [Concomitant]
     Route: 048
     Dates: start: 20090802

REACTIONS (4)
  - ALANINE AMINOTRANSFERASE INCREASED [None]
  - ASPARTATE AMINOTRANSFERASE INCREASED [None]
  - BLOOD LACTATE DEHYDROGENASE INCREASED [None]
  - GAMMA-GLUTAMYLTRANSFERASE INCREASED [None]
